FAERS Safety Report 8200004-7 (Version None)
Quarter: 2012Q1

REPORT INFORMATION
  Report Type: 
  Country: None (occurrence: None)
  Receive Date: 20120312
  Receipt Date: 20120306
  Transmission Date: 20120608
  Serious: No
  Sender: FDA-Public Use
  Company Number: US-PFIZER INC-2012035797

PATIENT
  Sex: Female
  Weight: 58.957 kg

DRUGS (12)
  1. SYNTHROID [Concomitant]
     Indication: HYPOTHYROIDISM
     Dosage: 100 UG, 1X/DAY
  2. PROPRANOLOL [Concomitant]
     Dosage: UNK
  3. XANAX [Concomitant]
     Dosage: UNK
  4. AMLODIPINE BESYLATE [Suspect]
     Indication: HYPERTENSION
     Dosage: 2.5 MG, DAILY
     Route: 048
     Dates: start: 20120207, end: 20120208
  5. PROCARDIA XL [Concomitant]
     Dosage: UNK
     Dates: start: 20120105, end: 20120207
  6. NEXIUM [Concomitant]
     Dosage: 40 MG, 1X/DAY
  7. NIFEDIPINE [Concomitant]
     Indication: HYPERTENSION
  8. DIOVAN [Concomitant]
     Dosage: 160 MG, 1X/DAY
  9. NORVASC [Suspect]
     Indication: HYPERTENSION
     Dosage: 5 MG, DAILY
     Route: 048
     Dates: start: 20111114, end: 20111114
  10. PROCARDIA XL [Concomitant]
     Indication: HYPERTENSION
     Dosage: UNK
     Dates: start: 19900101, end: 20111101
  11. PROCARDIA XL [Concomitant]
     Dosage: UNK
     Dates: start: 20120208
  12. PREMARIN [Concomitant]
     Dosage: 0.3 MG, DAILY

REACTIONS (7)
  - PALPITATIONS [None]
  - CHEST DISCOMFORT [None]
  - FEELING ABNORMAL [None]
  - DRUG INEFFECTIVE [None]
  - HYPOAESTHESIA [None]
  - CHEST PAIN [None]
  - NERVOUSNESS [None]
